FAERS Safety Report 22103262 (Version 1)
Quarter: 2023Q1

REPORT INFORMATION
  Report Type: Spontaneous
  Country: US (occurrence: None)
  Receive Date: 20230315
  Receipt Date: 20230315
  Transmission Date: 20230418
  Serious: Yes (Death)
  Sender: FDA-Public Use
  Company Number: None

PATIENT
  Age: 80 Year
  Sex: Male

DRUGS (10)
  1. ESBRIET [Suspect]
     Active Substance: PIRFENIDONE
     Indication: Idiopathic pulmonary fibrosis
     Route: 048
     Dates: start: 20170801, end: 20230309
  2. ANORO ELLIPT AER [Concomitant]
  3. ARNUITY ELPT INH [Concomitant]
  4. ATORVASTATIN [Concomitant]
     Active Substance: ATORVASTATIN
  5. DEXILANT CAP [Concomitant]
  6. DIPHEN/ATROP LIQ [Concomitant]
  7. FUROSEMIDE INJ [Concomitant]
  8. K-TAB [Concomitant]
     Active Substance: POTASSIUM CHLORIDE
  9. METOPROL TAR [Concomitant]
  10. RAMIPRIL [Concomitant]

REACTIONS (1)
  - Death [None]

NARRATIVE: CASE EVENT DATE: 20230309
